FAERS Safety Report 5942135-8 (Version None)
Quarter: 2008Q4

REPORT INFORMATION
  Report Type: 
  Country: None (occurrence: None)
  Receive Date: 20081105
  Receipt Date: 20081006
  Transmission Date: 20090506
  Serious: No
  Sender: FDA-Public Use
  Company Number: US-JNJFOC-20080903257

PATIENT
  Age: 30 Year
  Sex: Female
  Weight: 68.04 kg

DRUGS (4)
  1. INVEGA [Suspect]
     Indication: SCHIZOPHRENIA
     Route: 048
  2. LAMICTAL [Concomitant]
     Route: 048
  3. SEROQUEL [Concomitant]
     Route: 048
  4. WELLBUTRIN XL [Concomitant]
     Route: 048

REACTIONS (2)
  - BREAST TENDERNESS [None]
  - MENSTRUATION IRREGULAR [None]
